FAERS Safety Report 8871274 (Version 1)
Quarter: 2012Q4

REPORT INFORMATION
  Report Type: 
  Country: US (occurrence: US)
  Receive Date: 20121026
  Receipt Date: 20121026
  Transmission Date: 20130627
  Serious: No
  Sender: FDA-Public Use
  Company Number: US-AMGEN-USASP2012048247

PATIENT
  Sex: Female
  Weight: 90.7 kg

DRUGS (5)
  1. ENBREL [Suspect]
     Indication: PRODUCT USED FOR UNKNOWN INDICATION
     Dosage: 50 mg, qwk
     Route: 058
  2. QUINAPRIL [Concomitant]
     Dosage: 20 mg, UNK
  3. METFORMIN ER [Concomitant]
     Dosage: 500 mg, UNK
  4. HYDROCHLOROTH [Concomitant]
     Dosage: 25 mg, UNK
  5. VITAMIN D /00107901/ [Concomitant]
     Dosage: 400 unit, UNK

REACTIONS (1)
  - Blood glucose increased [Unknown]
